FAERS Safety Report 12887513 (Version 2)
Quarter: 2016Q4

REPORT INFORMATION
  Report Type: Spontaneous
  Country: IT (occurrence: IT)
  Receive Date: 20161026
  Receipt Date: 20161103
  Transmission Date: 20170207
  Serious: Yes (Life-Threatening)
  Sender: FDA-Public Use
  Company Number: IT-ASTRAZENECA-2016SF10492

PATIENT
  Age: 26752 Day
  Sex: Female
  Weight: 60 kg

DRUGS (3)
  1. FASLODEX [Suspect]
     Active Substance: FULVESTRANT
     Indication: BREAST CANCER
     Dosage: 250 MG/5 ML, 500 MG MONTHLY
     Route: 030
     Dates: start: 20160101, end: 20160901
  2. DUROGESIC [Concomitant]
     Active Substance: FENTANYL
     Indication: CANCER PAIN
     Dosage: 100 MCG/HR TRANSDERMAL PATCH
  3. GRANISETRON [Concomitant]
     Active Substance: GRANISETRON
     Dosage: 2 MG

REACTIONS (2)
  - Pulmonary infarction [Recovered/Resolved]
  - Pulmonary embolism [Recovered/Resolved]

NARRATIVE: CASE EVENT DATE: 20161015
